FAERS Safety Report 25729094 (Version 1)
Quarter: 2025Q3

REPORT INFORMATION
  Report Type: Spontaneous
  Country: US (occurrence: US)
  Receive Date: 20250827
  Receipt Date: 20250827
  Transmission Date: 20251020
  Serious: Yes (Other)
  Sender: ACCORD
  Company Number: US-MLMSERVICE-20250813-PI606201-00108-2

PATIENT
  Age: 21 Year
  Sex: Female

DRUGS (2)
  1. CLOZAPINE [Suspect]
     Active Substance: CLOZAPINE
     Indication: Schizophrenia
  2. CLOZAPINE [Suspect]
     Active Substance: CLOZAPINE
     Indication: Oculogyric crisis

REACTIONS (3)
  - Seizure like phenomena [Recovered/Resolved]
  - Condition aggravated [Recovered/Resolved]
  - Postictal state [Recovered/Resolved]
